FAERS Safety Report 24675846 (Version 1)
Quarter: 2024Q4

REPORT INFORMATION
  Report Type: Spontaneous
  Country: IN (occurrence: IN)
  Receive Date: 20241128
  Receipt Date: 20241128
  Transmission Date: 20250114
  Serious: Yes (Death, Other)
  Sender: PFIZER
  Company Number: IN-PFIZER INC-PV202200056065

PATIENT
  Age: 59 Year
  Sex: Male

DRUGS (7)
  1. SUTENT [Suspect]
     Active Substance: SUNITINIB MALATE
     Indication: Metastatic renal cell carcinoma
     Dosage: 50 MG, CYCLIC (DAILY, 2 WEEKS ON/ 2WEEKS OFF)
     Route: 048
     Dates: start: 20151215
  2. SUTENT [Suspect]
     Active Substance: SUNITINIB MALATE
     Dosage: 37.5 MG, CYCLIC (DAILY, 2WEEKS ON +1 WEEK OFF)
     Route: 048
     Dates: start: 20190711
  3. SUTENT [Suspect]
     Active Substance: SUNITINIB MALATE
     Dosage: 25 MG, 1X/DAY
     Route: 048
     Dates: start: 20220210
  4. SUTENT [Suspect]
     Active Substance: SUNITINIB MALATE
     Dosage: 50 MG, CYCLIC (DAILY, 2 WEEKS ON AND 2 WEEKS OFF)
     Route: 048
     Dates: start: 20220825
  5. ZYTEE [BENZALKONIUM CHLORIDE;CHOLINE SALICYLATE] [Concomitant]
     Dosage: UNK, L/A BD
  6. TELMA-H [Concomitant]
     Dosage: UNK, 1 TAB BD 0-0
  7. TELMA-H [Concomitant]
     Dosage: 1 TAB OD 0-0

REACTIONS (10)
  - Death [Fatal]
  - Diarrhoea [Unknown]
  - Heart rate increased [Unknown]
  - Blood pressure increased [Unknown]
  - Hypertransaminasaemia [Unknown]
  - Blood thyroid stimulating hormone increased [Recovering/Resolving]
  - Palmar-plantar erythrodysaesthesia syndrome [Unknown]
  - Dysgeusia [Unknown]
  - Pruritus [Unknown]
  - Product dose omission issue [Unknown]

NARRATIVE: CASE EVENT DATE: 20220825
